FAERS Safety Report 19432155 (Version 1)
Quarter: 2021Q2

REPORT INFORMATION
  Report Type: Spontaneous
  Country: CZ (occurrence: CZ)
  Receive Date: 20210617
  Receipt Date: 20210617
  Transmission Date: 20210717
  Serious: Yes (Hospitalization, Other)
  Sender: FDA-Public Use
  Company Number: CZ-LOTUS-2021-LOTUS-000543

PATIENT
  Age: 86 Year
  Sex: Female

DRUGS (38)
  1. BETALOC ZOK [Interacting]
     Active Substance: METOPROLOL SUCCINATE
     Indication: HYPERTENSION
     Dosage: STRENGTH: 25 MG?DOSE: 1?0?0
     Route: 048
  2. FOLIC ACID. [Interacting]
     Active Substance: FOLIC ACID
     Indication: PRODUCT USED FOR UNKNOWN INDICATION
     Dosage: 1?0?0 ON MONDAY
     Route: 048
  3. FENTANYL. [Interacting]
     Active Substance: FENTANYL
     Indication: POST HERPETIC NEURALGIA
     Dosage: 25 UG/H EVERY 72 HOURS
     Route: 062
     Dates: start: 2015
  4. DONEPEZIL HYDROCHLORIDE. [Suspect]
     Active Substance: DONEPEZIL HYDROCHLORIDE
     Indication: PRODUCT USED FOR UNKNOWN INDICATION
     Route: 065
  5. AGEN [Interacting]
     Active Substance: AMLODIPINE BESYLATE
     Indication: HYPERTENSION
     Dosage: STRENGTH: 5 MG?DOSE: 1?0?0
     Route: 048
  6. POTASSIUM ASPARTATE [Interacting]
     Active Substance: POTASSIUM ASPARTATE
     Indication: PRODUCT USED FOR UNKNOWN INDICATION
     Dosage: UNK
     Route: 065
  7. IBALGIN [Interacting]
     Active Substance: IBUPROFEN
     Indication: PAIN
     Dosage: UNK
     Route: 065
  8. CONDROSULF [Interacting]
     Active Substance: SODIUM CHONDROITIN SULFATE
     Indication: RHEUMATOID ARTHRITIS
     Dosage: STRENGTH: 800 MG?DOSE: 0?0?1
     Route: 048
  9. GUAJACURAN [Suspect]
     Active Substance: GUAIFENESIN
     Indication: PRODUCT USED FOR UNKNOWN INDICATION
     Route: 065
  10. PREDNISONE. [Interacting]
     Active Substance: PREDNISONE
     Indication: STEROID THERAPY
     Dosage: STRENGTH: 5 MG?DOSE: 1?0?0
     Route: 048
  11. ROSUCARD [Interacting]
     Active Substance: ROSUVASTATIN CALCIUM
     Indication: PRODUCT USED FOR UNKNOWN INDICATION
     Dosage: STRENGTH: 20 MG?DOSE: 0?0?1
     Route: 048
  12. ELIQUIS [Interacting]
     Active Substance: APIXABAN
     Indication: ANTICOAGULANT THERAPY
     Dosage: STRENGTH: 5 MG?DOSE: 1?0?1
     Route: 048
  13. ZOLPIDEM TARTRATE. [Interacting]
     Active Substance: ZOLPIDEM TARTRATE
     Indication: DRUG ABUSE
     Dosage: UNK
     Route: 065
  14. NICOFURANOSE. [Interacting]
     Active Substance: NICOFURANOSE
     Indication: ENCEPHALOPATHY
     Dosage: DOSE: 0?1?0
     Route: 048
  15. METAMIZOLE [Interacting]
     Active Substance: METAMIZOLE
     Indication: POST HERPETIC NEURALGIA
     Dosage: 1?0?1
     Route: 048
     Dates: start: 2015
  16. METHOTREXATE. [Suspect]
     Active Substance: METHOTREXATE
     Indication: RHEUMATOID ARTHRITIS
     Dosage: 10 MILLIGRAM, QWK
     Route: 065
     Dates: start: 2010
  17. PANTOPRAZOLE [Suspect]
     Active Substance: PANTOPRAZOLE
     Indication: PRODUCT USED FOR UNKNOWN INDICATION
     Route: 065
  18. CARDILAN [MAGNESIUM ASPARTATE/POTASSIUM ASPARTATE] [Interacting]
     Active Substance: MAGNESIUM ASPARTATE\POTASSIUM ASPARTATE
     Indication: PRODUCT USED FOR UNKNOWN INDICATION
     Dosage: 0?1?0
     Route: 048
  19. STILNOX [Interacting]
     Active Substance: ZOLPIDEM TARTRATE
     Indication: DRUG ABUSE
     Dosage: UNK
     Route: 065
  20. OXAZEPAM. [Interacting]
     Active Substance: OXAZEPAM
     Indication: DRUG ABUSE
     Dosage: UNK
     Route: 065
  21. ORAMELLOX [Interacting]
     Active Substance: MELOXICAM
     Indication: PAIN
     Dosage: STRENGTH: 15 MG?TAKEN APPROX. 3 TIMES PER WEEK
     Route: 048
  22. TEZEO HCT [Suspect]
     Active Substance: HYDROCHLOROTHIAZIDE\TELMISARTAN
     Indication: PRODUCT USED FOR UNKNOWN INDICATION
     Dosage: 1?0?0; 12.5 MG/80 MG
     Route: 048
  23. PANADOL [Interacting]
     Active Substance: ACETAMINOPHEN
     Indication: PAIN
     Dosage: 1.5 TABLET 3?4 TIMES A DAY
     Route: 048
     Dates: start: 2015
  24. ALPRAZOLAM. [Suspect]
     Active Substance: ALPRAZOLAM
     Indication: PRODUCT USED FOR UNKNOWN INDICATION
     Route: 065
  25. CAPTOPRIL. [Suspect]
     Active Substance: CAPTOPRIL
     Indication: PRODUCT USED FOR UNKNOWN INDICATION
     Route: 065
  26. RAMIPRIL. [Suspect]
     Active Substance: RAMIPRIL
     Indication: PRODUCT USED FOR UNKNOWN INDICATION
     Route: 065
  27. TRAZODONE [Suspect]
     Active Substance: TRAZODONE HYDROCHLORIDE
     Indication: PRODUCT USED FOR UNKNOWN INDICATION
     Route: 065
  28. TEZEO [Interacting]
     Active Substance: TELMISARTAN
     Indication: HYPERTENSION
     Dosage: STRENGTH: 80/12.5 MG?DOSE: 1?0?0
     Route: 048
  29. CORDARONE [Interacting]
     Active Substance: AMIODARONE HYDROCHLORIDE
     Indication: ATRIAL FIBRILLATION
     Dosage: STRENGTH: 200 MG?DOSE: 1?0?0
     Route: 048
  30. GUTTALAX [SODIUM PICOSULFATE] [Interacting]
     Active Substance: SODIUM PICOSULFATE
     Indication: CONSTIPATION
     Dosage: 1 DF
     Route: 065
  31. CALCIUM CARBONATE/COLECALCIFEROL [Interacting]
     Active Substance: CALCIUM CARBONATE\CHOLECALCIFEROL
     Indication: CALCIUM DEFICIENCY
     Dosage: DOSE: 0?0?1
     Route: 048
  32. TRAMADOL HYDROCHLORIDE. [Interacting]
     Active Substance: TRAMADOL HYDROCHLORIDE
     Indication: PRODUCT USED FOR UNKNOWN INDICATION
     Route: 065
  33. NOVALGIN (METAMIZOLE SODIUM) [Interacting]
     Active Substance: METAMIZOLE SODIUM
     Indication: HYPERTENSION
     Dosage: STRENGTH: 500 MG?DOSE: 1?0?1
  34. EUTHYROX [Interacting]
     Active Substance: LEVOTHYROXINE SODIUM
     Indication: AUTOIMMUNE THYROIDITIS
     Dosage: 100 MICROGRAM, QD
     Route: 065
  35. MAGNESIUM ASPARTATE [Interacting]
     Active Substance: MAGNESIUM ASPARTATE
     Indication: PRODUCT USED FOR UNKNOWN INDICATION
     Dosage: UNK
     Route: 065
  36. CONTROLOC [Interacting]
     Active Substance: PANTOPRAZOLE SODIUM
     Indication: NAUSEA
     Dosage: STRENGTH: 20 MG?DOSE: 1?0?0
     Route: 048
  37. OMEPRAZOLE. [Suspect]
     Active Substance: OMEPRAZOLE
     Indication: PRODUCT USED FOR UNKNOWN INDICATION
     Route: 065
  38. PREGABALIN. [Concomitant]
     Active Substance: PREGABALIN
     Indication: POST HERPETIC NEURALGIA
     Dosage: UNK

REACTIONS (31)
  - Oxygen saturation decreased [Recovered/Resolved]
  - Urinary retention [Recovered/Resolved]
  - Cognitive disorder [Recovered/Resolved]
  - Cognitive disorder [Recovered/Resolved]
  - Immobile [Recovered/Resolved]
  - Affect lability [Recovered/Resolved]
  - Dehydration [Recovered/Resolved]
  - Hyponatraemia [Recovered/Resolved]
  - Hypokalaemia [Recovered/Resolved]
  - General physical health deterioration [Recovering/Resolving]
  - Apathy [Recovered/Resolved]
  - Mobility decreased [Recovered/Resolved]
  - Loss of personal independence in daily activities [Recovered/Resolved]
  - Fall [Recovering/Resolving]
  - Liver function test increased [Recovered/Resolved]
  - Listless [Recovering/Resolving]
  - Reduced facial expression [Recovered/Resolved]
  - Medication error [Recovered/Resolved]
  - Incorrect dose administered [Unknown]
  - Hypertension [Recovering/Resolving]
  - Delirium [Recovered/Resolved]
  - Vertigo [Recovered/Resolved]
  - Atrial fibrillation [Recovered/Resolved]
  - Discomfort [Recovered/Resolved]
  - Confusional state [Recovered/Resolved]
  - Drug interaction [Recovered/Resolved]
  - Head discomfort [Recovered/Resolved]
  - Nausea [Recovered/Resolved]
  - Encephalopathy [Recovering/Resolving]
  - Anxiety [Recovered/Resolved]
  - Condition aggravated [Recovered/Resolved]

NARRATIVE: CASE EVENT DATE: 2018
